FAERS Safety Report 9038231 (Version 1)
Quarter: 2013Q1

REPORT INFORMATION
  Report Type: Spontaneous
  Country: US (occurrence: US)
  Receive Date: 20130129
  Receipt Date: 20130129
  Transmission Date: 20140127
  Serious: No
  Sender: FDA-Public Use
  Company Number: US-GLAXOSMITHKLINE-A0990082A

PATIENT
  Age: 55 Year
  Sex: Male

DRUGS (4)
  1. BUPROPION HYDROCHLORIDE [Suspect]
     Indication: BIPOLAR DISORDER
     Dosage: 75MG PER DAY
     Route: 048
     Dates: start: 201207
  2. CITALOPRAM [Concomitant]
  3. UNKNOWN MEDICATION [Concomitant]
     Indication: HEPATITIS C
  4. INTERFERON [Concomitant]

REACTIONS (5)
  - Energy increased [Unknown]
  - Insomnia [Unknown]
  - Ill-defined disorder [Unknown]
  - Emotional disorder [Unknown]
  - Therapeutic response unexpected [Unknown]
